FAERS Safety Report 18351736 (Version 3)
Quarter: 2022Q4

REPORT INFORMATION
  Report Type: Spontaneous
  Country: JP (occurrence: JP)
  Receive Date: 20201006
  Receipt Date: 20221124
  Transmission Date: 20230113
  Serious: Yes (Other)
  Sender: FDA-Public Use
  Company Number: JP-JNJFOC-20200949356

PATIENT
  Sex: Male

DRUGS (1)
  1. ZYTIGA [Suspect]
     Active Substance: ABIRATERONE ACETATE
     Indication: Prostate cancer metastatic
     Route: 048
     Dates: start: 201803

REACTIONS (4)
  - Interstitial lung disease [Recovered/Resolved]
  - Hepatic function abnormal [Recovered/Resolved]
  - Fluid retention [Recovered/Resolved]
  - Off label use [Unknown]
